FAERS Safety Report 4348433-6 (Version None)
Quarter: 2004Q1

REPORT INFORMATION
  Report Type: 
  Country: None (occurrence: None)
  Receive Date: 20040325
  Receipt Date: 20031117
  Transmission Date: 20041129
  Serious: No
  Sender: FDA-Public Use
  Company Number: USA031153146

PATIENT
  Sex: Female

DRUGS (3)
  1. FORTEO [Suspect]
  2. ACTONEL [Concomitant]
  3. CALCIUM [Concomitant]

REACTIONS (1)
  - BONE PAIN [None]
